FAERS Safety Report 17573064 (Version 3)
Quarter: 2022Q3

REPORT INFORMATION
  Report Type: Spontaneous
  Country: BE (occurrence: BE)
  Receive Date: 20200323
  Receipt Date: 20220926
  Transmission Date: 20221026
  Serious: Yes (Death, Other)
  Sender: FDA-Public Use
  Company Number: NVSC2020BE080847

PATIENT
  Age: 55 Year
  Sex: Female

DRUGS (2)
  1. GILENYA [Suspect]
     Active Substance: FINGOLIMOD HYDROCHLORIDE
     Indication: Relapsing-remitting multiple sclerosis
     Dosage: 0.5 MG, QD
     Route: 065
     Dates: start: 201402
  2. LEVOTHYROXINE [Concomitant]
     Active Substance: LEVOTHYROXINE
     Indication: Relapsing-remitting multiple sclerosis
     Dosage: 125 UG, QD
     Route: 065

REACTIONS (7)
  - Glioblastoma [Fatal]
  - Dysarthria [Fatal]
  - Hemiparesis [Fatal]
  - Ataxia [Fatal]
  - Hypoaesthesia [Fatal]
  - Nystagmus [Fatal]
  - Lymphopenia [Unknown]

NARRATIVE: CASE EVENT DATE: 20181001
